FAERS Safety Report 21593616 (Version 1)
Quarter: 2022Q4

REPORT INFORMATION
  Report Type: Report from Study
  Country: US (occurrence: US)
  Receive Date: 20221115
  Receipt Date: 20221115
  Transmission Date: 20230112
  Serious: No
  Sender: FDA-Public Use
  Company Number: US-ABBVIE-22K-163-4517114-00

PATIENT
  Sex: Female

DRUGS (2)
  1. SKYRIZI [Suspect]
     Active Substance: RISANKIZUMAB-RZAA
     Indication: Immunosuppressant drug therapy
     Dosage: FORM STRENGTH: 150 MILLIGRAM?WEEK FOUR?ONE IN ONCE
     Route: 058
     Dates: start: 20211007, end: 20211007
  2. SKYRIZI [Suspect]
     Active Substance: RISANKIZUMAB-RZAA
     Dosage: FORM STRENGTH: 150 MILLIGRAM
     Route: 058
     Dates: start: 20220812

REACTIONS (2)
  - Condition aggravated [Unknown]
  - Discomfort [Unknown]
